FAERS Safety Report 7047736-4 (Version None)
Quarter: 2010Q4

REPORT INFORMATION
  Report Type: 
  Country: None (occurrence: None)
  Receive Date: 20101015
  Receipt Date: 20101011
  Transmission Date: 20110411
  Serious: Yes (Death)
  Sender: FDA-Public Use
  Company Number: PHHY2010BR68217

PATIENT
  Sex: Female

DRUGS (2)
  1. FORASEQ [Suspect]
     Indication: EMPHYSEMA
     Dosage: 1 DF, BID
  2. COMBIVENT [Concomitant]
     Indication: EMPHYSEMA
     Dosage: TWICE A DAY

REACTIONS (1)
  - ACUTE RESPIRATORY FAILURE [None]
